FAERS Safety Report 4281017-7 (Version None)
Quarter: 2004Q1

REPORT INFORMATION
  Report Type: 
  Country: None (occurrence: None)
  Receive Date: 20040122
  Receipt Date: 20031021
  Transmission Date: 20041129
  Serious: Yes (Other)
  Sender: FDA-Public Use
  Company Number: 2003-BP-04576RO(1)

PATIENT
  Sex: Male
  Weight: 28.4 kg

DRUGS (1)
  1. MIDAZOLAM HCL SYRUP, 2 MG/ML (MIDAZOLAM HYDROCHLORIDE) [Suspect]
     Indication: DENTAL TREATMENT
     Dosage: 10 MG (RT ONCE), PO
     Route: 048
     Dates: start: 20030620, end: 20030620

REACTIONS (2)
  - RESPIRATORY DEPRESSION [None]
  - SEDATION [None]
